FAERS Safety Report 18980760 (Version 1)
Quarter: 2021Q1

REPORT INFORMATION
  Report Type: Other
  Country: AT (occurrence: AT)
  Receive Date: 20210308
  Receipt Date: 20210308
  Transmission Date: 20210420
  Serious: Yes (Other)
  Sender: FDA-Public Use
  Company Number: AT-ROCHE-2784920

PATIENT
  Age: 45 Year
  Sex: Male

DRUGS (3)
  1. TOCILIZUMAB. [Suspect]
     Active Substance: TOCILIZUMAB
     Indication: CASTLEMAN^S DISEASE
     Route: 065
  2. CORTISONE [Suspect]
     Active Substance: CORTISONE
     Indication: CASTLEMAN^S DISEASE
     Route: 065
  3. LETERMOVIR [Concomitant]
     Active Substance: LETERMOVIR

REACTIONS (1)
  - Cytomegalovirus infection reactivation [Unknown]
